FAERS Safety Report 8795991 (Version 1)
Quarter: 2012Q4

REPORT INFORMATION
  Report Type: 
  Country: JP (occurrence: JP)
  Receive Date: 20120919
  Receipt Date: 20120919
  Transmission Date: 20130627
  Serious: Yes (Other)
  Sender: FDA-Public Use
  Company Number: JP-TEVA-358317ISR

PATIENT
  Age: 60 Year
  Sex: Female

DRUGS (2)
  1. FUROSEMIDE [Suspect]
     Route: 048
     Dates: start: 20120903, end: 20120903
  2. EBRANTIL CAP. [Concomitant]

REACTIONS (2)
  - Loss of consciousness [Unknown]
  - Ear discomfort [Unknown]
